FAERS Safety Report 9742118 (Version 1)
Quarter: 2013Q4

REPORT INFORMATION
  Report Type: Spontaneous
  Country: US (occurrence: US)
  Receive Date: 20131210
  Receipt Date: 20131210
  Transmission Date: 20140711
  Serious: No
  Sender: FDA-Public Use
  Company Number: US-ENDO PHARMACEUTICALS INC.-CARI20130001

PATIENT
  Age: 63 Year
  Sex: Male

DRUGS (4)
  1. CARISOPRODOL TABLETS 350MG [Suspect]
     Indication: PAIN
     Route: 048
  2. CARISOPRODOL TABLETS 350MG [Suspect]
     Dosage: 175 MG
     Route: 048
  3. PERCOCET 10MG/325MG [Concomitant]
     Indication: PAIN
     Dosage: 10/325 MG
     Route: 048
  4. PRO AIR INHALER [Concomitant]
     Indication: EMPHYSEMA
     Dosage: UNK

REACTIONS (4)
  - Nausea [Unknown]
  - Dizziness [Unknown]
  - Somnolence [Unknown]
  - Drug ineffective [Not Recovered/Not Resolved]
